FAERS Safety Report 25086622 (Version 2)
Quarter: 2025Q3

REPORT INFORMATION
  Report Type: Report from Study
  Country: US (occurrence: US)
  Receive Date: 20250317
  Receipt Date: 20250811
  Transmission Date: 20251021
  Serious: Yes (Other)
  Sender: ABBVIE
  Company Number: US-ABBVIE-6174693

PATIENT
  Age: 23 Year
  Sex: Male

DRUGS (1)
  1. RINVOQ [Suspect]
     Active Substance: UPADACITINIB
     Indication: Crohn^s disease
     Route: 002
     Dates: start: 20240124, end: 20250402

REACTIONS (3)
  - Cardiac aneurysm [Unknown]
  - Myocardial infarction [Unknown]
  - Thoracic haemorrhage [Unknown]

NARRATIVE: CASE EVENT DATE: 20250101
